APPROVED DRUG PRODUCT: ENALAPRIL MALEATE AND HYDROCHLOROTHIAZIDE
Active Ingredient: ENALAPRIL MALEATE; HYDROCHLOROTHIAZIDE
Strength: 10MG;25MG
Dosage Form/Route: TABLET;ORAL
Application: A076486 | Product #002
Applicant: MPP PHARMA LLC
Approved: Oct 27, 2004 | RLD: No | RS: No | Type: DISCN